FAERS Safety Report 5490814-1 (Version None)
Quarter: 2007Q4

REPORT INFORMATION
  Report Type: 
  Country: None (occurrence: None)
  Receive Date: 20071019
  Receipt Date: 20050314
  Transmission Date: 20080405
  Serious: Yes (Other)
  Sender: FDA-Public Use
  Company Number: NO-ROCHE-524456

PATIENT
  Age: 41 Year
  Sex: Male

DRUGS (2)
  1. XENICAL [Suspect]
     Indication: WEIGHT CONTROL
     Route: 048
  2. XENICAL [Suspect]
     Route: 048
     Dates: end: 20050101

REACTIONS (2)
  - COLITIS ULCERATIVE [None]
  - HAEMATOCHEZIA [None]
